FAERS Safety Report 8563841-5 (Version None)
Quarter: 2012Q3

REPORT INFORMATION
  Report Type: 
  Country: None (occurrence: None)
  Receive Date: 20120727
  Receipt Date: 20120727
  Transmission Date: 20120928
  Serious: Yes (Hospitalization)
  Sender: FDA-Public Use
  Company Number: None

PATIENT
  Age: 63 Year
  Sex: Female
  Weight: 62.8 kg

DRUGS (6)
  1. DORIPENEM [Suspect]
     Indication: URINARY TRACT INFECTION
     Dosage: 500MG Q8HR IVPB RECENT
     Route: 042
  2. AZITHROMYCIN [Concomitant]
  3. HUMIRA [Concomitant]
  4. OMNIPAQUE 300 [Suspect]
     Indication: COMPUTERISED TOMOGRAM
     Dosage: 125ML ONCE IV RECENT
  5. ALBUTEROL [Concomitant]
  6. MIRALAX [Concomitant]

REACTIONS (12)
  - PERIHEPATIC ABSCESS [None]
  - PYREXIA [None]
  - OXYGEN SATURATION DECREASED [None]
  - HEART RATE INCREASED [None]
  - THROAT TIGHTNESS [None]
  - HYPOXIA [None]
  - URINARY TRACT INFECTION [None]
  - CONTRAST MEDIA REACTION [None]
  - ABDOMINAL PAIN [None]
  - WHEEZING [None]
  - TACHYCARDIA [None]
  - ANAPHYLACTIC REACTION [None]
